FAERS Safety Report 9062122 (Version 1)
Quarter: 2013Q1

REPORT INFORMATION
  Report Type: Spontaneous
  Country: US (occurrence: US)
  Receive Date: 20130127
  Receipt Date: 20130127
  Transmission Date: 20140127
  Serious: No
  Sender: FDA-Public Use
  Company Number: US-ALLERGAN-1208476US

PATIENT
  Age: 62 Year
  Sex: Female

DRUGS (6)
  1. PRED FORTE [Suspect]
     Indication: OCULAR HYPERAEMIA
     Dosage: UNK
     Route: 047
     Dates: start: 201204
  2. STEROID (NOS) [Suspect]
     Indication: EYE INFECTION
     Dosage: UNK
     Route: 048
  3. STEROID (NOS) [Suspect]
     Indication: EYE INFLAMMATION
  4. ANTIBIOTIC (UNSPECIFIED) [Concomitant]
     Indication: OCULAR HYPERAEMIA
     Dosage: UNK
     Route: 047
  5. ANTIVIRAL (UNSPECIFIED) [Concomitant]
     Indication: OCULAR HYPERAEMIA
     Dosage: UNK
     Route: 047
  6. MANY EYE DROP SAMPLES UNSPECIFED [Concomitant]
     Indication: OCULAR HYPERAEMIA
     Dosage: UNK
     Route: 047

REACTIONS (2)
  - Overdose [Unknown]
  - Intraocular pressure increased [Recovering/Resolving]
